FAERS Safety Report 4541798-1 (Version None)
Quarter: 2004Q4

REPORT INFORMATION
  Report Type: 
  Country: None (occurrence: None)
  Receive Date: 20041227
  Receipt Date: 20041214
  Transmission Date: 20050328
  Serious: Yes (Hospitalization)
  Sender: FDA-Public Use
  Company Number: 2004114927

PATIENT
  Age: 67 Year
  Sex: Male

DRUGS (6)
  1. ESTRAMUSTINE PHOSPHATE SODIUM  (ESTRAMUSTINE PHOSPHATE SODIUM) [Suspect]
     Indication: PROSTATE CANCER
     Dosage: 560 MG, ORAL
     Route: 048
     Dates: start: 20040207, end: 20040101
  2. DEXAMETHASONE [Suspect]
     Indication: PROSTATE CANCER
     Dosage: 15.2 MG, INTRAVENOUS
     Route: 042
     Dates: start: 20040207, end: 20040915
  3. PACLITAXEL [Suspect]
     Indication: NEOPLASM MALIGNANT
     Dosage: 150 MG, INTRAVENOUS
     Route: 042
     Dates: start: 20040207, end: 20040915
  4. LEUPROELIN ACETATE             (LEUPRORELIN ACETATE) [Suspect]
     Indication: PROSTATE CANCER
     Dosage: 11.25 MG, SUBCUTANEOUS
     Route: 058
     Dates: start: 20040207, end: 20040915
  5. RANITIDINE HYDROCHLORIDE [Suspect]
     Indication: GASTRITIS
     Dosage: 50 MG, INTRAVENOUS
     Route: 042
     Dates: start: 20040207, end: 20040915
  6. TAMSULOSIN HYDROCHLORIDE       (TAMSULOSIN HYDROCHLORIDE) [Concomitant]

REACTIONS (2)
  - DYSLALIA [None]
  - HEMIPARESIS [None]
